FAERS Safety Report 9112872 (Version 2)
Quarter: 2013Q1

REPORT INFORMATION
  Report Type: Report from Study
  Country: US (occurrence: US)
  Receive Date: 20130211
  Receipt Date: 20130228
  Transmission Date: 20140127
  Serious: Yes (Other)
  Sender: FDA-Public Use
  Company Number: US-ROCHE-1188767

PATIENT
  Age: 35 Year
  Sex: Male

DRUGS (1)
  1. XOLAIR [Suspect]
     Indication: ASTHMA
     Route: 065

REACTIONS (4)
  - Throat tightness [Unknown]
  - Pulmonary function test decreased [Unknown]
  - Choking [Unknown]
  - Anaphylactic reaction [Unknown]
